FAERS Safety Report 10196994 (Version 2)
Quarter: 2014Q2

REPORT INFORMATION
  Report Type: Report from Study
  Country: US (occurrence: US)
  Receive Date: 20140527
  Receipt Date: 20140527
  Transmission Date: 20141212
  Serious: Yes (Death, Other)
  Sender: FDA-Public Use
  Company Number: US-B.I. PHARMACEUTICALS,INC./RIDGEFIELD-2014-BI-08198BI

PATIENT
  Age: 77 Year
  Sex: Female

DRUGS (12)
  1. GILOTRIF [Suspect]
     Indication: LUNG NEOPLASM MALIGNANT
     Dosage: 40 MG
     Route: 048
     Dates: start: 20140115, end: 20140511
  2. VITAMIN B12 [Concomitant]
     Dosage: FORMULATION: INJECTION
     Route: 065
  3. LIPITOR [Concomitant]
     Route: 065
  4. VICODAN [Concomitant]
     Route: 065
  5. SYNTHROID [Concomitant]
     Route: 065
  6. TRIPIPIX [Concomitant]
     Route: 065
  7. COMPAZINE [Concomitant]
     Route: 065
  8. MORPHINE [Concomitant]
     Route: 065
  9. INDERAL [Concomitant]
     Route: 065
  10. STOOL SOFTNER [Concomitant]
     Route: 065
  11. SENAKOT [Concomitant]
     Route: 065
  12. TRIBENZOR [Concomitant]
     Route: 065

REACTIONS (5)
  - Death [Fatal]
  - Nausea [Unknown]
  - Diarrhoea [Unknown]
  - Rash [Unknown]
  - Fatigue [Unknown]
